FAERS Safety Report 4631314-8 (Version None)
Quarter: 2005Q2

REPORT INFORMATION
  Report Type: 
  Country: None (occurrence: None)
  Receive Date: 20050406
  Receipt Date: 20050324
  Transmission Date: 20051028
  Serious: Yes (Hospitalization, Other)
  Sender: FDA-Public Use
  Company Number: 2005049116

PATIENT
  Sex: Female

DRUGS (1)
  1. DILANTIN KAPSEAL [Suspect]
     Indication: ILL-DEFINED DISORDER
     Dosage: 200 MG (100 MG, 1 IN 1 D) ORAL; 60 MG (30MG, 1IN 1 D); ORAL
     Route: 048

REACTIONS (4)
  - ANTICONVULSANT DRUG LEVEL INCREASED [None]
  - CEREBROVASCULAR ACCIDENT [None]
  - DISORIENTATION [None]
  - PCO2 INCREASED [None]
